FAERS Safety Report 7996059-5 (Version None)
Quarter: 2011Q4

REPORT INFORMATION
  Report Type: 
  Country: None (occurrence: None)
  Receive Date: 20111220
  Receipt Date: 20111209
  Transmission Date: 20120403
  Serious: Yes (Hospitalization, Other)
  Sender: FDA-Public Use
  Company Number: PHHY2011JP108310

PATIENT
  Age: 70 Year
  Sex: Male

DRUGS (2)
  1. STEROIDS [Concomitant]
  2. ZOMETA [Suspect]
     Indication: METASTASES TO BONE
     Dosage: 4 MG, PER ADMINISTRATION
     Route: 041
     Dates: start: 20111101, end: 20111101

REACTIONS (9)
  - PAIN [None]
  - FISTULA [None]
  - BONE PAIN [None]
  - EXPOSED BONE IN JAW [None]
  - PURULENT DISCHARGE [None]
  - OSTEONECROSIS OF JAW [None]
  - PYREXIA [None]
  - OSTEOMYELITIS [None]
  - SWELLING [None]
